FAERS Safety Report 9618716 (Version 2)
Quarter: 2013Q4

REPORT INFORMATION
  Report Type: Spontaneous
  Country: DE (occurrence: DE)
  Receive Date: 20131014
  Receipt Date: 20131104
  Transmission Date: 20140711
  Serious: Yes (Hospitalization)
  Sender: FDA-Public Use
  Company Number: DE-ROCHE-1288184

PATIENT
  Age: 64 Year
  Sex: Male
  Weight: 133 kg

DRUGS (5)
  1. XELODA [Suspect]
     Indication: COLORECTAL CANCER METASTATIC
     Route: 048
     Dates: start: 20130904, end: 20130911
  2. RAMIPRIL [Concomitant]
     Indication: HYPERTENSION
     Route: 048
     Dates: start: 20130730
  3. TORASEMIDE [Concomitant]
     Indication: HYPERTENSION
     Route: 048
  4. METFORMIN [Concomitant]
     Indication: DIABETES MELLITUS
     Route: 048
     Dates: start: 201210
  5. AMLODIPIN [Concomitant]
     Indication: HYPERTENSION
     Route: 048
     Dates: start: 20130809

REACTIONS (9)
  - Rhabdomyolysis [Recovered/Resolved]
  - Renal failure acute [Recovered/Resolved]
  - Haematuria [Recovered/Resolved]
  - Leukocytosis [Recovered/Resolved]
  - General physical health deterioration [Unknown]
  - Sleep disorder [Unknown]
  - Hallucination, visual [Unknown]
  - Muscular weakness [Not Recovered/Not Resolved]
  - Myalgia [Recovered/Resolved]
